FAERS Safety Report 9015755 (Version 2)
Quarter: 2013Q1

REPORT INFORMATION
  Report Type: Spontaneous
  Country: BR (occurrence: None)
  Receive Date: 20130102
  Receipt Date: 20130129
  Transmission Date: 20140127
  Serious: Yes (Other)
  Sender: FDA-Public Use
  Company Number: DSA_61645_2012

PATIENT
  Age: 30 Year
  Sex: Female
  Weight: 89 kg

DRUGS (1)
  1. ELIDEL [Suspect]
     Indication: DERMATITIS CONTACT
     Route: 061

REACTIONS (10)
  - Vitamin D decreased [None]
  - Hypersensitivity [None]
  - Skin disorder [None]
  - Pruritus [None]
  - Erythema [None]
  - Skin irritation [None]
  - Skin fissures [None]
  - Skin injury [None]
  - Burning sensation [None]
  - Pain of skin [None]
